FAERS Safety Report 9782334 (Version 1)
Quarter: 2013Q4

REPORT INFORMATION
  Report Type: Report from Study
  Country: BE (occurrence: BE)
  Receive Date: 20131226
  Receipt Date: 20131226
  Transmission Date: 20140711
  Serious: Yes (Other)
  Sender: FDA-Public Use
  Company Number: BE-VERTEX PHARMACEUTICALS INC-2013-012001

PATIENT
  Age: 69 Year
  Sex: Female

DRUGS (8)
  1. TELAPREVIR [Suspect]
     Indication: HEPATITIS C
  2. PEGINTRON [Suspect]
     Indication: HEPATITIS C
  3. REBETOL [Suspect]
     Indication: HEPATITIS C
  4. XANAX [Concomitant]
     Dosage: 1/2 AT 20 HOUR
  5. PANTOMED [Concomitant]
  6. ALDACTONE [Concomitant]
  7. EMCONCOR [Concomitant]
  8. ASAFLOW [Concomitant]

REACTIONS (2)
  - Nephrolithiasis [Unknown]
  - Anaemia [Recovered/Resolved]
